FAERS Safety Report 17721843 (Version 1)
Quarter: 2020Q2

REPORT INFORMATION
  Report Type: Spontaneous
  Country: US (occurrence: US)
  Receive Date: 20200429
  Receipt Date: 20200429
  Transmission Date: 20200714
  Serious: No
  Sender: FDA-Public Use
  Company Number: US-009507513-2004USA008483

PATIENT
  Sex: Female
  Weight: 91.9 kg

DRUGS (4)
  1. CITRACAL PRENATAL 90 PLUS DHA [Concomitant]
     Dosage: UNK
  2. PROMETHAZINE HYDROCHLORIDE. [Concomitant]
     Active Substance: PROMETHAZINE HYDROCHLORIDE
     Dosage: UNK
  3. INTRON A [Suspect]
     Active Substance: INTERFERON ALFA-2B
     Indication: CHRONIC MYELOID LEUKAEMIA
     Dosage: 10 MM UNIT SDV W/DILUENT
     Route: 058
     Dates: end: 20200428
  4. STERILE DILUENT (WATER) [Suspect]
     Active Substance: WATER
     Indication: CHRONIC MYELOID LEUKAEMIA
     Dosage: UNK
     Route: 058

REACTIONS (1)
  - Drug intolerance [Unknown]
